FAERS Safety Report 15742208 (Version 1)
Quarter: 2018Q4

REPORT INFORMATION
  Report Type: Spontaneous
  Country: JP (occurrence: JP)
  Receive Date: 20181219
  Receipt Date: 20181219
  Transmission Date: 20190205
  Serious: Yes (Other)
  Sender: FDA-Public Use
  Company Number: JP-CELGENEUS-JPN-20181204880

PATIENT
  Age: 85 Year
  Sex: Male

DRUGS (2)
  1. AZACITIDINE. [Suspect]
     Active Substance: AZACITIDINE
     Indication: PRODUCT USED FOR UNKNOWN INDICATION
     Dosage: 110 MILLIGRAM
     Route: 065
  2. AZACITIDINE. [Suspect]
     Active Substance: AZACITIDINE
     Dosage: 110 MILLIGRAM
     Route: 065
     Dates: start: 20181031, end: 20181106

REACTIONS (1)
  - Cystitis haemorrhagic [Unknown]
